FAERS Safety Report 18430706 (Version 1)
Quarter: 2020Q4

REPORT INFORMATION
  Report Type: Spontaneous
  Country: US (occurrence: US)
  Receive Date: 20201027
  Receipt Date: 20201027
  Transmission Date: 20210114
  Serious: Yes (Other)
  Sender: FDA-Public Use
  Company Number: US-NOVOPROD-760541

PATIENT
  Sex: Male

DRUGS (1)
  1. NOVOLIN 70/30 [Suspect]
     Active Substance: INSULIN HUMAN
     Indication: PRODUCT USED FOR UNKNOWN INDICATION
     Dosage: BID
     Route: 058

REACTIONS (5)
  - Weight decreased [Unknown]
  - Glycosylated haemoglobin increased [Unknown]
  - Glycosylated haemoglobin increased [Not Recovered/Not Resolved]
  - Glycosylated haemoglobin increased [Unknown]
  - Renal disorder [Unknown]

NARRATIVE: CASE EVENT DATE: 20200531
